FAERS Safety Report 25710955 (Version 1)
Quarter: 2025Q3

REPORT INFORMATION
  Report Type: Spontaneous
  Country: US (occurrence: US)
  Receive Date: 20250821
  Receipt Date: 20250821
  Transmission Date: 20251020
  Serious: No
  Sender: SANOFI AVENTIS
  Company Number: US-SA-2025SA246423

PATIENT
  Age: 49 Year
  Sex: Female

DRUGS (32)
  1. DUPIXENT [Suspect]
     Active Substance: DUPILUMAB
     Indication: Asthma
     Dosage: 300 MG, QOW
     Route: 058
     Dates: start: 20250729
  2. HERBALS [Concomitant]
     Active Substance: HERBALS
  3. IBUPROFEN [Concomitant]
     Active Substance: IBUPROFEN
  4. LEVOFLOXACIN [Concomitant]
     Active Substance: LEVOFLOXACIN
  5. ROSUVASTATIN [Concomitant]
     Active Substance: ROSUVASTATIN
  6. ALBUTEROL SULFATE [Concomitant]
     Active Substance: ALBUTEROL SULFATE
  7. TIZANIDINE [Concomitant]
     Active Substance: TIZANIDINE
  8. ARIPIPRAZOLE [Concomitant]
     Active Substance: ARIPIPRAZOLE
  9. OMEPRAZOLE [Concomitant]
     Active Substance: OMEPRAZOLE
  10. CLONAZEPAM [Concomitant]
     Active Substance: CLONAZEPAM
  11. ONDANSETRON [Concomitant]
     Active Substance: ONDANSETRON
  12. GABAPENTIN [Concomitant]
     Active Substance: GABAPENTIN
  13. HYDROCORTISONE [Concomitant]
     Active Substance: HYDROCORTISONE
  14. ESZOPICLONE [Concomitant]
     Active Substance: ESZOPICLONE
  15. NOVOLOG [Concomitant]
     Active Substance: INSULIN ASPART
  16. TOUJEO [Concomitant]
     Active Substance: INSULIN GLARGINE
  17. MOUNJARO [Concomitant]
     Active Substance: TIRZEPATIDE
  18. METOPROLOL [Concomitant]
     Active Substance: METOPROLOL
  19. PREDNISONE [Concomitant]
     Active Substance: PREDNISONE
  20. DULOXETINE [Concomitant]
     Active Substance: DULOXETINE
  21. GEMTESA [Concomitant]
     Active Substance: VIBEGRON
  22. DOXYCYCLINE [Concomitant]
     Active Substance: DOXYCYCLINE
  23. METHYLPREDNISOLONE [Concomitant]
     Active Substance: METHYLPREDNISOLONE
  24. PRAZOSIN HYDROCHLORIDE [Concomitant]
     Active Substance: PRAZOSIN HYDROCHLORIDE
  25. POTASSIUM CHLORIDE [Concomitant]
     Active Substance: POTASSIUM CHLORIDE
  26. TORSEMIDE [Concomitant]
     Active Substance: TORSEMIDE
  27. MONTELUKAST [Concomitant]
     Active Substance: MONTELUKAST
  28. CEFUROXIME [Concomitant]
     Active Substance: CEFUROXIME
  29. FLUTICASONE [Concomitant]
     Active Substance: FLUTICASONE
  30. METHIMAZOLE [Concomitant]
     Active Substance: METHIMAZOLE
  31. TRAZODONE [Concomitant]
     Active Substance: TRAZODONE HYDROCHLORIDE
  32. KLAYESTA [Concomitant]
     Active Substance: NYSTATIN

REACTIONS (1)
  - Myalgia [Unknown]

NARRATIVE: CASE EVENT DATE: 20250101
